FAERS Safety Report 16827814 (Version 1)
Quarter: 2019Q3

REPORT INFORMATION
  Report Type: Spontaneous
  Country: US (occurrence: US)
  Receive Date: 20190919
  Receipt Date: 20190919
  Transmission Date: 20191005
  Serious: No
  Sender: FDA-Public Use
  Company Number: US-BEH-2019106556

PATIENT
  Sex: Female

DRUGS (5)
  1. MELATONIN [Concomitant]
     Active Substance: MELATONIN
     Dosage: 10 MILLIGRAM
  2. MULTIVITAMINS [VITAMINS NOS] [Concomitant]
     Active Substance: VITAMINS
     Dosage: UNK
  3. HIZENTRA [Suspect]
     Active Substance: HUMAN IMMUNOGLOBULIN G
     Indication: IMMUNODEFICIENCY
     Dosage: 10 GRAM, QW
     Route: 058
     Dates: start: 201905
  4. HIZENTRA [Suspect]
     Active Substance: HUMAN IMMUNOGLOBULIN G
     Dosage: 8 GRAM, TOT
     Route: 065
  5. BENADRYL ALLERGY RELIEF [Concomitant]
     Dosage: 25 MILLIGRAM

REACTIONS (4)
  - Nausea [Recovered/Resolved]
  - Chills [Recovered/Resolved]
  - Administration site swelling [Recovered/Resolved]
  - Administration site erythema [Recovered/Resolved]
